FAERS Safety Report 5052163-5 (Version None)
Quarter: 2006Q3

REPORT INFORMATION
  Report Type: 
  Country: None (occurrence: None)
  Receive Date: 20060713
  Receipt Date: 20060713
  Transmission Date: 20061208
  Serious: Yes (Disabling)
  Sender: FDA-Public Use
  Company Number: None

PATIENT
  Age: 49 Year
  Sex: Male
  Weight: 84.369 kg

DRUGS (14)
  1. DAPTOMYCIN 500 MG CUBIST PHARMACEUTICALS [Suspect]
     Indication: STAPHYLOCOCCAL BACTERAEMIA
     Dosage: 500 MG DAILY IV BOLUS
     Route: 040
     Dates: start: 20060616, end: 20060619
  2. SPIRONOLACTONE [Concomitant]
  3. ZOLPIDEM TARTRATE [Concomitant]
  4. ASPRIRIN [Concomitant]
  5. CARVEDILOL [Concomitant]
  6. LANOXIN [Concomitant]
  7. FUROSEMIDE [Concomitant]
  8. ATORVASTATIN CALCIUM [Concomitant]
  9. LISINOPRIL [Concomitant]
  10. PANTOPRAZOLE SODIUM [Concomitant]
  11. MIRTAZAPINE [Concomitant]
  12. OLANZAPINE [Concomitant]
  13. LINEZOLID [Concomitant]
  14. VANCOMYCIN [Concomitant]

REACTIONS (2)
  - BLOOD CREATINE PHOSPHOKINASE INCREASED [None]
  - MYALGIA [None]
